FAERS Safety Report 13212192 (Version 1)
Quarter: 2017Q1

REPORT INFORMATION
  Report Type: Spontaneous
  Country: US (occurrence: US)
  Receive Date: 20170209
  Receipt Date: 20170209
  Transmission Date: 20170428
  Serious: No
  Sender: FDA-Public Use
  Company Number: US-ALLERGAN-1659226US

PATIENT
  Age: 42 Year
  Sex: Female
  Weight: 49.89 kg

DRUGS (7)
  1. BOTOX COSMETIC [Suspect]
     Active Substance: ONABOTULINUMTOXINA
     Indication: SKIN WRINKLING
     Dosage: 2 UNITS, SINGLE
     Route: 030
     Dates: start: 20160223, end: 20160223
  2. BOTOX COSMETIC [Suspect]
     Active Substance: ONABOTULINUMTOXINA
     Dosage: UNK UNK, SINGLE
     Route: 030
     Dates: start: 20140508, end: 20140508
  3. BOTOX COSMETIC [Suspect]
     Active Substance: ONABOTULINUMTOXINA
     Indication: SKIN WRINKLING
     Dosage: UNK, SINGLE
     Route: 030
     Dates: start: 201410, end: 201410
  4. BOTOX COSMETIC [Suspect]
     Active Substance: ONABOTULINUMTOXINA
     Indication: SKIN WRINKLING
     Dosage: 24 UNITS, UNK
     Route: 030
     Dates: start: 20160209, end: 20160209
  5. BOTOX COSMETIC [Suspect]
     Active Substance: ONABOTULINUMTOXINA
     Dosage: UNK, SINGLE
     Route: 030
     Dates: start: 201312, end: 201312
  6. BOTOX COSMETIC [Suspect]
     Active Substance: ONABOTULINUMTOXINA
     Indication: SKIN WRINKLING
     Dosage: 16 UNITS, SINGLE
     Route: 030
     Dates: start: 20160209, end: 20160209
  7. BOTOX COSMETIC [Suspect]
     Active Substance: ONABOTULINUMTOXINA
     Indication: SKIN WRINKLING
     Dosage: UNK UNK, SINGLE
     Route: 030
     Dates: start: 20150224, end: 20150224

REACTIONS (16)
  - Off label use [Unknown]
  - Facial paralysis [Recovered/Resolved]
  - Dyspnoea [Recovered/Resolved]
  - Vitreous detachment [Unknown]
  - Dysphagia [Recovered/Resolved]
  - Eyelid ptosis [Recovered/Resolved]
  - Panic attack [Recovered/Resolved]
  - Facial asymmetry [Not Recovered/Not Resolved]
  - Rash [Recovered/Resolved]
  - Deformity [Unknown]
  - Weight decreased [Recovered/Resolved]
  - Wheezing [Not Recovered/Not Resolved]
  - Visual field defect [Unknown]
  - Throat tightness [Recovered/Resolved]
  - Choking [Recovered/Resolved]
  - Retinal disorder [Unknown]

NARRATIVE: CASE EVENT DATE: 201602
